FAERS Safety Report 24625577 (Version 1)
Quarter: 2024Q4

REPORT INFORMATION
  Report Type: Spontaneous
  Country: US (occurrence: US)
  Receive Date: 20241115
  Receipt Date: 20241115
  Transmission Date: 20250115
  Serious: Yes (Other)
  Sender: CATALYST PHARMA
  Company Number: US-CATALYSTPHARMACEUTICALPARTNERS-US-CATA-24-01265

PATIENT
  Age: 49 Year
  Sex: Female
  Weight: 77.098 kg

DRUGS (16)
  1. FYCOMPA [Suspect]
     Active Substance: PERAMPANEL
     Indication: Seizure
     Dosage: 4 MG TABLET - TAKE 1 TABLET EVERY NIGHT AT BEDTIME
     Route: 048
     Dates: start: 20230522
  2. TYLENOL [Concomitant]
     Active Substance: ACETAMINOPHEN
     Indication: Product used for unknown indication
     Dosage: 1000 MG EVERY FOUR TO SIX HOURS
     Route: 048
  3. ALBUTEROL SULFATE [Concomitant]
     Active Substance: ALBUTEROL SULFATE
     Indication: Dyspnoea
     Dosage: 2 PUFFS EVERY 6 HOURS AS NEEDED
     Route: 055
     Dates: start: 20230523
  4. ALBUTEROL SULFATE [Concomitant]
     Active Substance: ALBUTEROL SULFATE
     Indication: Wheezing
  5. ALBUTEROL SULFATE [Concomitant]
     Active Substance: ALBUTEROL SULFATE
     Indication: Cough
  6. LIPITOR [Concomitant]
     Active Substance: ATORVASTATIN CALCIUM
     Indication: Product used for unknown indication
     Dosage: 20 MG AS NECESSARY TWO TO THREE TIMES A WEEK
     Route: 048
     Dates: start: 20230420
  7. KLONOPIN [Concomitant]
     Active Substance: CLONAZEPAM
     Indication: Seizure cluster
     Dosage: 1 TABLET ONCE DAILY AT BEDTIME; MAY TAKE 1 ADDITIONAL TABLET TWICE DAILY AS NEEDED
     Route: 048
     Dates: start: 20240909
  8. DILANTIN [Concomitant]
     Active Substance: PHENYTOIN
     Indication: Product used for unknown indication
     Dosage: 3 CAPSULES (300 MG) EVERY NIGHT AT BEDTIME
     Route: 048
     Dates: start: 20231107
  9. DILANTIN [Concomitant]
     Active Substance: PHENYTOIN
     Dosage: 3 CAPSULE (300 MG) EVERY NIGHT AT BEDTIME
     Route: 048
     Dates: start: 20240909
  10. CARDIZEM CD [Concomitant]
     Active Substance: DILTIAZEM HYDROCHLORIDE
     Indication: Product used for unknown indication
     Dosage: 1 CAPSULE ONCE DAILY
     Route: 048
     Dates: start: 20240102
  11. DEPAKOTE [Concomitant]
     Active Substance: DIVALPROEX SODIUM
     Indication: Product used for unknown indication
     Dosage: 125 MG
     Route: 065
     Dates: start: 20240919
  12. DEPAKOTE [Concomitant]
     Active Substance: DIVALPROEX SODIUM
     Indication: Product used for unknown indication
     Dosage: 1 TABLET (125 MG) 2 TIMES A DAY
     Route: 048
     Dates: start: 20240909
  13. EPINEPHRINE [Concomitant]
     Active Substance: EPINEPHRINE
     Indication: Allergy to arthropod sting
     Dosage: 0.3 MG/0.3 ML, 1 SYRINGE AS NEEDED; MAY USE UP TO 2 DOSES
     Route: 030
     Dates: start: 20240305
  14. NEURONTIN [Concomitant]
     Active Substance: GABAPENTIN
     Indication: Product used for unknown indication
     Dosage: 1 TABLET (600 MG) EVERY NIGHT AT BEDTIME
     Route: 048
     Dates: start: 20240909
  15. ADVIL; MOTRIN-IB [Concomitant]
     Indication: Product used for unknown indication
     Dosage: 200-600 MG EVERY 4 TO 6 HOURS AS NEEDED
     Route: 048
  16. VITAMINS [Concomitant]
     Active Substance: VITAMINS
     Indication: Product used for unknown indication
     Dosage: 1 TABLET PER DAY
     Route: 048

REACTIONS (9)
  - Apnoeic attack [Not Recovered/Not Resolved]
  - Psychosexual disorder [Not Recovered/Not Resolved]
  - Tooth loss [Not Recovered/Not Resolved]
  - Snoring [Not Recovered/Not Resolved]
  - Osteopenia [Not Recovered/Not Resolved]
  - Drug therapy [Not Recovered/Not Resolved]
  - Overweight [Not Recovered/Not Resolved]
  - Influenza [Unknown]
  - Adverse reaction [Not Recovered/Not Resolved]

NARRATIVE: CASE EVENT DATE: 20231107
